FAERS Safety Report 10827592 (Version 1)
Quarter: 2015Q1

REPORT INFORMATION
  Report Type: Report from Study
  Country: US (occurrence: US)
  Receive Date: 20150219
  Receipt Date: 20150219
  Transmission Date: 20150721
  Serious: No
  Sender: FDA-Public Use
  Company Number: US-ABBVIE-14K-163-1325796-00

PATIENT
  Age: 87 Year
  Sex: Male
  Weight: 90.8 kg

DRUGS (11)
  1. XARELTO [Concomitant]
     Active Substance: RIVAROXABAN
     Indication: PRODUCT USED FOR UNKNOWN INDICATION
  2. PRESERVISION [Concomitant]
     Indication: PRODUCT USED FOR UNKNOWN INDICATION
  3. COLCRYS [Concomitant]
     Active Substance: COLCHICINE
     Indication: PRODUCT USED FOR UNKNOWN INDICATION
  4. OMEPRAZOLE. [Concomitant]
     Active Substance: OMEPRAZOLE
     Indication: PRODUCT USED FOR UNKNOWN INDICATION
  5. HUMIRA [Suspect]
     Active Substance: ADALIMUMAB
     Dosage: 2 WEEKS LATER
     Route: 065
     Dates: start: 2014
  6. LISINOPRIL. [Concomitant]
     Active Substance: LISINOPRIL
     Indication: PRODUCT USED FOR UNKNOWN INDICATION
  7. HUMIRA [Suspect]
     Active Substance: ADALIMUMAB
     Dosage: 2 WEEKS LATER
     Route: 065
     Dates: start: 2014, end: 2014
  8. DILTIAZEM [Concomitant]
     Active Substance: DILTIAZEM
     Indication: PRODUCT USED FOR UNKNOWN INDICATION
  9. HUMIRA [Suspect]
     Active Substance: ADALIMUMAB
     Indication: COLITIS ULCERATIVE
     Route: 065
     Dates: start: 201407, end: 201407
  10. LYRICA [Concomitant]
     Active Substance: PREGABALIN
     Indication: PRODUCT USED FOR UNKNOWN INDICATION
  11. DICLOFENAC [Concomitant]
     Active Substance: DICLOFENAC
     Indication: PRODUCT USED FOR UNKNOWN INDICATION

REACTIONS (1)
  - Localised infection [Recovering/Resolving]

NARRATIVE: CASE EVENT DATE: 201409
